FAERS Safety Report 8996555 (Version 5)
Quarter: 2013Q4

REPORT INFORMATION
  Report Type: Spontaneous
  Country: US (occurrence: US)
  Receive Date: 20130104
  Receipt Date: 20131119
  Transmission Date: 20140711
  Serious: Yes (Hospitalization, Disabling, Other)
  Sender: FDA-Public Use
  Company Number: US-BAYER-2013-000308

PATIENT
  Age: 33 Year
  Sex: Female
  Weight: 127 kg

DRUGS (15)
  1. YAZ [Suspect]
     Indication: CONTRACEPTION
     Dosage: UNK
     Dates: start: 200401
  2. YASMIN [Suspect]
     Indication: CONTRACEPTION
     Dosage: UNK
     Dates: start: 200401
  3. ZYPREXA [Concomitant]
     Indication: BIPOLAR DISORDER
  4. ZOLOFT [Concomitant]
     Indication: DEPRESSION
     Dosage: UNK
     Dates: start: 2000, end: 2012
  5. WELLBUTRIN [Concomitant]
  6. SEROQUEL [Concomitant]
     Dosage: UNK
     Dates: start: 2000, end: 2012
  7. PRILOSEC [Concomitant]
  8. VALTREX [Concomitant]
  9. VICODIN [Concomitant]
  10. XANAX [Concomitant]
  11. NEXIUM [Concomitant]
  12. ALLEGRA [Concomitant]
  13. LASIX [Concomitant]
  14. LISINOPRIL [Concomitant]
  15. LOPRESSOR [Concomitant]

REACTIONS (11)
  - Pulmonary embolism [None]
  - Injury [None]
  - Pain [None]
  - Emotional distress [None]
  - Anxiety [None]
  - Psychological trauma [None]
  - Deep vein thrombosis [None]
  - Deep vein thrombosis [None]
  - Vena cava thrombosis [None]
  - Deep vein thrombosis [None]
  - Deep vein thrombosis [None]
